FAERS Safety Report 7818278-0 (Version None)
Quarter: 2011Q4

REPORT INFORMATION
  Report Type: 
  Country: None (occurrence: None)
  Receive Date: 20111017
  Receipt Date: 20111011
  Transmission Date: 20120403
  Serious: Yes (Other)
  Sender: FDA-Public Use
  Company Number: US-ABBOTT-11P-163-0863281-00

PATIENT
  Age: 79 Year
  Sex: Female
  Weight: 44.038 kg

DRUGS (4)
  1. SYNTHROID [Suspect]
     Indication: HORMONE REPLACEMENT THERAPY
     Dosage: HALF TABLET DAILY
     Route: 048
     Dates: start: 19830101
  2. TYLENOL-500 [Concomitant]
     Indication: ARTHRITIS
  3. VALIUM [Concomitant]
     Indication: PRODUCT USED FOR UNKNOWN INDICATION
  4. SYNTHROID [Suspect]

REACTIONS (5)
  - RIB FRACTURE [None]
  - BACK PAIN [None]
  - ABDOMINAL PAIN UPPER [None]
  - SPINAL FRACTURE [None]
  - ARTHRALGIA [None]
